FAERS Safety Report 10610913 (Version 2)
Quarter: 2014Q4

REPORT INFORMATION
  Report Type: Spontaneous
  Country: US (occurrence: None)
  Receive Date: 20141124
  Receipt Date: 20141205
  Transmission Date: 20150529
  Serious: Yes (Other)
  Sender: FDA-Public Use
  Company Number: 2605321

PATIENT
  Age: 77 Year
  Sex: Male

DRUGS (4)
  1. SYNTHROID [Concomitant]
     Active Substance: LEVOTHYROXINE SODIUM
  2. BENICAR [Concomitant]
     Active Substance: OLMESARTAN MEDOXOMIL
  3. LIDOCAINE HCL 1% + EPIN. 1:100,000 INJ, USP, MULTI-DOSE FLIPTOP VIALS (LIDOCAINE HYDROCHLRIDE) [Suspect]
     Active Substance: EPINEPHRINE\LIDOCAINE HYDROCHLORIDE
     Indication: ANAESTHESIA
     Dates: start: 20140930
  4. SODIUM BICARBONATE. [Suspect]
     Active Substance: SODIUM BICARBONATE
     Indication: DRUG THERAPY
     Dosage: MORE THAN 3 ML
     Dates: start: 20140930

REACTIONS (6)
  - Erythema [None]
  - Wrong technique in drug usage process [None]
  - Burning sensation [None]
  - Induration [None]
  - Drug ineffective [None]
  - Incorrect dose administered [None]

NARRATIVE: CASE EVENT DATE: 20140930
